FAERS Safety Report 23309407 (Version 2)
Quarter: 2023Q4

REPORT INFORMATION
  Report Type: Report from Study
  Country: US (occurrence: US)
  Receive Date: 20231218
  Receipt Date: 20231221
  Transmission Date: 20240110
  Serious: Yes (Other)
  Sender: FDA-Public Use
  Company Number: US-ABBVIE-5538029

PATIENT
  Age: 64 Year
  Sex: Female

DRUGS (1)
  1. HUMIRA [Suspect]
     Active Substance: ADALIMUMAB
     Indication: Product used for unknown indication
     Dates: start: 20210815, end: 20211027

REACTIONS (7)
  - Cardiac ablation [Unknown]
  - Oral herpes [Recovered/Resolved]
  - Genital herpes [Unknown]
  - Psoriatic arthropathy [Recovered/Resolved]
  - Erythema multiforme [Recovered/Resolved]
  - Cystitis [Recovered/Resolved]
  - Viral infection [Unknown]

NARRATIVE: CASE EVENT DATE: 20211102
